FAERS Safety Report 19941250 (Version 1)
Quarter: 2021Q4

REPORT INFORMATION
  Report Type: Spontaneous
  Country: CN (occurrence: CN)
  Receive Date: 20211011
  Receipt Date: 20211011
  Transmission Date: 20220304
  Serious: Yes (Other)
  Sender: FDA-Public Use
  Company Number: CN-PFIZER INC-202101282180

PATIENT
  Age: 91 Year
  Sex: Female
  Weight: 50 kg

DRUGS (2)
  1. LIPITOR [Suspect]
     Active Substance: ATORVASTATIN CALCIUM
     Indication: Symptomatic treatment
     Dosage: 20 MG, 1X/DAY
     Dates: start: 20210916, end: 20210921
  2. GATIFLOXACIN [Suspect]
     Active Substance: GATIFLOXACIN
     Indication: Symptomatic treatment
     Dosage: 100 MG, 1X/DAY
     Route: 041
     Dates: start: 20210918, end: 20210921

REACTIONS (1)
  - Liver injury [Recovering/Resolving]

NARRATIVE: CASE EVENT DATE: 20210921
